FAERS Safety Report 9098510 (Version 1)
Quarter: 2013Q1

REPORT INFORMATION
  Report Type: Spontaneous
  Country: AU (occurrence: AU)
  Receive Date: 20130213
  Receipt Date: 20130213
  Transmission Date: 20140127
  Serious: Yes (Death, Other)
  Sender: FDA-Public Use
  Company Number: AU-CELGENEUS-008-FK228-13021107

PATIENT
  Sex: Female

DRUGS (2)
  1. ROMIDEPSIN [Suspect]
     Indication: PERIPHERAL T-CELL LYMPHOMA UNSPECIFIED RECURRENT
     Route: 041
     Dates: start: 20121220
  2. DEXAMETHASONE [Concomitant]
     Indication: PERIPHERAL T-CELL LYMPHOMA UNSPECIFIED RECURRENT
     Dosage: 20 MILLIGRAM
     Route: 065
     Dates: start: 20121220

REACTIONS (5)
  - Respiratory arrest [Fatal]
  - Haemorrhage intracranial [Fatal]
  - Peripheral T-cell lymphoma unspecified [Fatal]
  - Loss of consciousness [Unknown]
  - Thrombocytopenia [Unknown]
